FAERS Safety Report 20061423 (Version 1)
Quarter: 2021Q4

REPORT INFORMATION
  Report Type: Report from Study
  Country: US (occurrence: US)
  Receive Date: 20211112
  Receipt Date: 20211112
  Transmission Date: 20220303
  Serious: Yes (Hospitalization)
  Sender: FDA-Public Use
  Company Number: US-BIOGEN-2021BI01067242

PATIENT
  Sex: Female
  Weight: 21.338 kg

DRUGS (1)
  1. SPINRAZA [Suspect]
     Active Substance: NUSINERSEN
     Indication: Spinal muscular atrophy
     Dosage: INJECT 5 ML (12 MG) INTRATHECALLY EVERY 4 MONTHS.
     Route: 037
     Dates: start: 201701

REACTIONS (3)
  - Respiratory syncytial virus infection [Unknown]
  - Gastrointestinal infection [Unknown]
  - Nasopharyngitis [Unknown]
